FAERS Safety Report 22605868 (Version 1)
Quarter: 2023Q2

REPORT INFORMATION
  Report Type: Spontaneous
  Country: AR (occurrence: None)
  Receive Date: 20230615
  Receipt Date: 20230615
  Transmission Date: 20230722
  Serious: Yes (Other)
  Sender: FDA-Public Use
  Company Number: AR-ROCHE-3369410

PATIENT
  Age: 75 Year
  Sex: Male

DRUGS (1)
  1. TECENTRIQ [Suspect]
     Active Substance: ATEZOLIZUMAB
     Indication: Lung neoplasm malignant
     Route: 041
     Dates: start: 20220805, end: 202210

REACTIONS (4)
  - Therapy cessation [Unknown]
  - Lung neoplasm malignant [Unknown]
  - Arthrodesis [Unknown]
  - Osteopenia [Unknown]

NARRATIVE: CASE EVENT DATE: 20221001
